FAERS Safety Report 8154068-X (Version None)
Quarter: 2012Q1

REPORT INFORMATION
  Report Type: 
  Country: None (occurrence: None)
  Receive Date: 20120221
  Receipt Date: 20120216
  Transmission Date: 20120608
  Serious: Yes (Other)
  Sender: FDA-Public Use
  Company Number: US-ROCHE-1019988

PATIENT
  Sex: Male
  Weight: 48.5 kg

DRUGS (1)
  1. NUTROPIN AQ [Suspect]
     Indication: GROWTH HORMONE DEFICIENCY
     Dosage: FREQUENCY - 7DAYS/WEEK
     Route: 058
     Dates: start: 20110129, end: 20111130

REACTIONS (5)
  - NO THERAPEUTIC RESPONSE [None]
  - GROIN PAIN [None]
  - ARTHRALGIA [None]
  - BACK PAIN [None]
  - POST-TRAUMATIC PAIN [None]
